FAERS Safety Report 25206077 (Version 2)
Quarter: 2025Q2

REPORT INFORMATION
  Report Type: Spontaneous
  Country: US (occurrence: US)
  Receive Date: 20250417
  Receipt Date: 20250422
  Transmission Date: 20250716
  Serious: Yes (Hospitalization, Other)
  Sender: BRISTOL-MYERS SQUIBB COMPANY
  Company Number: US-BRISTOL-MYERS SQUIBB COMPANY-2025-055809

PATIENT
  Age: 92 Year
  Sex: Male
  Weight: 71.21 kg

DRUGS (4)
  1. ELIQUIS [Suspect]
     Active Substance: APIXABAN
     Indication: Atrial fibrillation
     Route: 048
     Dates: start: 20230603
  2. VYNDAMAX [Concomitant]
     Active Substance: TAFAMIDIS
     Indication: Heart failure with reduced ejection fraction
     Dosage: QUANTITY #30 CAPSULES (30 DAYS)
     Route: 048
     Dates: start: 20250410
  3. VYNDAMAX [Concomitant]
     Active Substance: TAFAMIDIS
     Indication: Cardiac amyloidosis
  4. ROSUVASTATIN [Concomitant]
     Active Substance: ROSUVASTATIN
     Dosage: QHS
     Route: 048
     Dates: start: 20221128

REACTIONS (6)
  - Cardiac failure congestive [Unknown]
  - Fall [Unknown]
  - General physical health deterioration [Unknown]
  - Memory impairment [Unknown]
  - Syncope [Unknown]
  - Cognitive disorder [Unknown]

NARRATIVE: CASE EVENT DATE: 20240101
